FAERS Safety Report 8693318 (Version 5)
Quarter: 2012Q4

REPORT INFORMATION
  Report Type: 
  Country: FR (occurrence: FR)
  Receive Date: 20120730
  Receipt Date: 20120905
  Transmission Date: 20130627
  Serious: Yes (Congenital Anomaly)
  Sender: FDA-Public Use
  Company Number: FR-ABBOTT-12P-056-0960304-00

PATIENT
  Sex: Male

DRUGS (3)
  1. NORVIR [Suspect]
     Indication: MATERNAL EXPOSURE TIMING UNSPECIFIED
     Route: 064
  2. REYATAZ [Suspect]
     Indication: MATERNAL EXPOSURE TIMING UNSPECIFIED
     Route: 064
  3. TRUVADA [Suspect]
     Indication: MATERNAL EXPOSURE TIMING UNSPECIFIED
     Route: 064

REACTIONS (16)
  - Bladder dilatation [Unknown]
  - Eagle Barrett syndrome [Unknown]
  - Anal atresia [Unknown]
  - Renal aplasia [Unknown]
  - Intestinal malrotation [Unknown]
  - Persistent cloaca [Unknown]
  - Foetal exposure during pregnancy [Unknown]
  - Abdominal distension [Unknown]
  - Renal dysplasia [Unknown]
  - Trisomy 21 [Unknown]
  - Renal aplasia [Unknown]
  - Low set ears [Unknown]
  - Protrusion tongue [Unknown]
  - Cleft palate [Unknown]
  - Eagle Barrett syndrome [Unknown]
  - Dysmorphism [Unknown]
